FAERS Safety Report 6562099-6 (Version None)
Quarter: 2010Q1

REPORT INFORMATION
  Report Type: 
  Country: None (occurrence: None)
  Receive Date: 20100130
  Receipt Date: 20091102
  Transmission Date: 20100710
  Serious: No
  Sender: FDA-Public Use
  Company Number: US-ABBOTT-09P-163-0606305-00

PATIENT
  Sex: Male
  Weight: 123.49 kg

DRUGS (5)
  1. HUMIRA [Suspect]
     Indication: RHEUMATOID ARTHRITIS
     Route: 058
     Dates: start: 20090721
  2. PREDNISONE [Concomitant]
     Indication: DRUG USE FOR UNKNOWN INDICATION
  3. HYDROXYCHLOROQUINE SULFATE [Concomitant]
     Indication: DRUG USE FOR UNKNOWN INDICATION
  4. KENALOG [Concomitant]
     Indication: DRUG USE FOR UNKNOWN INDICATION
  5. UNKNOWN INJECTION [Concomitant]
     Indication: DRUG USE FOR UNKNOWN INDICATION

REACTIONS (4)
  - ARTHRALGIA [None]
  - MUSCULOSKELETAL PAIN [None]
  - PAIN IN EXTREMITY [None]
  - RHEUMATOID ARTHRITIS [None]
